FAERS Safety Report 9769503 (Version 1)
Quarter: 2013Q4

REPORT INFORMATION
  Report Type: Spontaneous
  Country: US (occurrence: None)
  Receive Date: 20131217
  Receipt Date: 20131217
  Transmission Date: 20140711
  Serious: Yes (Hospitalization)
  Sender: FDA-Public Use
  Company Number: None

PATIENT
  Sex: 0

DRUGS (3)
  1. CARBOPLATIN [Suspect]
     Route: 042
  2. CETUXIMAB [Suspect]
     Route: 042
  3. PACLITAXEL (TAXOL) [Suspect]
     Route: 042

REACTIONS (5)
  - Anaemia [None]
  - Dyspnoea [None]
  - Pancytopenia [None]
  - Pyrexia [None]
  - Cardiac tamponade [None]
